FAERS Safety Report 12596115 (Version 2)
Quarter: 2017Q2

REPORT INFORMATION
  Report Type: Spontaneous
  Country: None (occurrence: US)
  Receive Date: 20160726
  Receipt Date: 20170526
  Transmission Date: 20170830
  Serious: No
  Sender: FDA-Public Use
  Company Number: US-MYLANLABS-2016M1022276

PATIENT
  Sex: Female

DRUGS (3)
  1. PAROXETINE. [Suspect]
     Active Substance: PAROXETINE
     Dosage: 25 MG, QD
     Route: 048
     Dates: start: 20160507, end: 20160514
  2. PAROXETINE. [Suspect]
     Active Substance: PAROXETINE
     Dosage: 12.5 MG, QD
     Route: 048
     Dates: start: 20160501, end: 20160506
  3. PAROXETINE. [Suspect]
     Active Substance: PAROXETINE
     Dosage: 37.5 MG, QD
     Route: 048
     Dates: start: 20160515

REACTIONS (1)
  - Drug effect delayed [Not Recovered/Not Resolved]

NARRATIVE: CASE EVENT DATE: 20160501
